FAERS Safety Report 24744231 (Version 1)
Quarter: 2024Q4

REPORT INFORMATION
  Report Type: Report from Study
  Country: EG (occurrence: EG)
  Receive Date: 20241217
  Receipt Date: 20241217
  Transmission Date: 20250114
  Serious: Yes (Disabling)
  Sender: ROCHE
  Company Number: EG-ROCHE-3418625

PATIENT
  Age: 30 Year
  Sex: Female
  Weight: 49.0 kg

DRUGS (1)
  1. OCREVUS [Suspect]
     Active Substance: OCRELIZUMAB
     Indication: Multiple sclerosis
     Dosage: SECOND INFUSION 22/AUG/2023 THEREAFTER 600 MG EVERY 24 WEEK (6 MONTH)??EVERY 24 WEEKS
     Route: 042
     Dates: start: 20230808

REACTIONS (11)
  - Movement disorder [Not Recovered/Not Resolved]
  - Hemihypoaesthesia [Not Recovered/Not Resolved]
  - Headache [Not Recovered/Not Resolved]
  - Benign breast neoplasm [Not Recovered/Not Resolved]
  - Dyspnoea [Not Recovered/Not Resolved]
  - Electric shock sensation [Not Recovered/Not Resolved]
  - Dizziness [Not Recovered/Not Resolved]
  - Breast cyst [Not Recovered/Not Resolved]
  - Balance disorder [Not Recovered/Not Resolved]
  - Sciatica [Not Recovered/Not Resolved]
  - Urogenital disorder [Not Recovered/Not Resolved]

NARRATIVE: CASE EVENT DATE: 20230904
